FAERS Safety Report 8380596-8 (Version None)
Quarter: 2012Q2

REPORT INFORMATION
  Report Type: 
  Country: None (occurrence: None)
  Receive Date: 20120523
  Receipt Date: 20120516
  Transmission Date: 20120825
  Serious: Yes (Hospitalization)
  Sender: FDA-Public Use
  Company Number: US-ROCHE-1048950

PATIENT
  Sex: Female

DRUGS (1)
  1. ZELBORAF [Suspect]
     Indication: PRODUCT USED FOR UNKNOWN INDICATION
     Route: 065

REACTIONS (8)
  - DEHYDRATION [None]
  - NAUSEA [None]
  - MYALGIA [None]
  - ORAL CANDIDIASIS [None]
  - PAIN IN EXTREMITY [None]
  - VOMITING [None]
  - ARTHRALGIA [None]
  - RASH [None]
